FAERS Safety Report 9387580 (Version 1)
Quarter: 2013Q3

REPORT INFORMATION
  Report Type: Report from Study
  Country: None (occurrence: DE)
  Receive Date: 20130708
  Receipt Date: 20130708
  Transmission Date: 20140515
  Serious: Yes (Death)
  Sender: FDA-Public Use
  Company Number: DE-GALEN LIMITED-AE-2013/0702

PATIENT
  Age: 12 Year
  Sex: 0

DRUGS (3)
  1. DAUNOXOME [Suspect]
     Indication: ACUTE MYELOID LEUKAEMIA
  2. CYTARABINE [Suspect]
     Indication: ACUTE MYELOID LEUKAEMIA
  3. ETOPOSIDE [Suspect]
     Indication: ACUTE MYELOID LEUKAEMIA

REACTIONS (8)
  - Circulatory collapse [Fatal]
  - Cardiac failure [Fatal]
  - Renal failure [Fatal]
  - Respiratory failure [Fatal]
  - Septic shock [Fatal]
  - Sepsis [Fatal]
  - Toxic epidermal necrolysis [Fatal]
  - Mechanical ventilation [None]
